FAERS Safety Report 8350300-8 (Version None)
Quarter: 2012Q2

REPORT INFORMATION
  Report Type: 
  Country: None (occurrence: None)
  Receive Date: 20120510
  Receipt Date: 20120508
  Transmission Date: 20120825
  Serious: Yes (Hospitalization)
  Sender: FDA-Public Use
  Company Number: US-PFIZER INC-2012112369

PATIENT
  Sex: Female
  Weight: 77.098 kg

DRUGS (2)
  1. LISINOPRIL [Concomitant]
     Dosage: UNK
  2. NORVASC [Suspect]
     Indication: BLOOD PRESSURE ABNORMAL
     Dosage: 5 MG, DAILY

REACTIONS (3)
  - OEDEMA PERIPHERAL [None]
  - OEDEMA [None]
  - CARDIAC FAILURE [None]
